FAERS Safety Report 9139728 (Version 1)
Quarter: 2013Q1

REPORT INFORMATION
  Report Type: Spontaneous
  Country: US (occurrence: US)
  Receive Date: 20130305
  Receipt Date: 20130305
  Transmission Date: 20140127
  Serious: No
  Sender: FDA-Public Use
  Company Number: US-ENDO PHARMACEUTICALS INC.-SPLN20120047

PATIENT
  Age: 3 None
  Sex: Female
  Weight: 18.1 kg

DRUGS (1)
  1. SUPPRELIN LA [Suspect]
     Indication: PRECOCIOUS PUBERTY
     Route: 058
     Dates: start: 20120118, end: 20120501

REACTIONS (3)
  - Enuresis [Unknown]
  - Dysphemia [Recovered/Resolved]
  - Rash [Recovered/Resolved]
